FAERS Safety Report 8926374 (Version 1)
Quarter: 2012Q4

REPORT INFORMATION
  Report Type: 
  Country: FR (occurrence: FR)
  Receive Date: 20121127
  Receipt Date: 20121127
  Transmission Date: 20130627
  Serious: Yes (Other)
  Sender: FDA-Public Use
  Company Number: FR-GLAXOSMITHKLINE-B0839260A

PATIENT
  Age: 32 None
  Sex: Female
  Weight: 99 kg

DRUGS (4)
  1. LAMICTAL [Suspect]
     Indication: EPILEPSY
     Dosage: 150MG Twice per day
     Route: 048
     Dates: start: 20120929, end: 20121007
  2. ALEPSAL [Concomitant]
     Indication: EPILEPSY
     Route: 048
     Dates: start: 2001
  3. RIVOTRIL [Concomitant]
     Indication: EPILEPSY
     Route: 048
     Dates: start: 2001
  4. VALIUM [Concomitant]
     Indication: EPILEPSY
     Route: 048
     Dates: start: 2001

REACTIONS (6)
  - Hepatocellular injury [Recovered/Resolved]
  - Fatigue [Recovered/Resolved]
  - Vomiting [Unknown]
  - Diarrhoea [Unknown]
  - Dizziness [Unknown]
  - Visual acuity reduced [Unknown]
